FAERS Safety Report 14262508 (Version 1)
Quarter: 2017Q4

REPORT INFORMATION
  Report Type: Spontaneous
  Country: KR (occurrence: KR)
  Receive Date: 20171208
  Receipt Date: 20171208
  Transmission Date: 20180321
  Serious: No
  Sender: FDA-Public Use
  Company Number: KR-KYOWAKIRIN-2017BKK002677

PATIENT

DRUGS (13)
  1. BUSULFAN. [Concomitant]
     Active Substance: BUSULFAN
     Dosage: 59.8 MG, QD (DAY -7)
     Route: 042
  2. PGE 1 [Concomitant]
     Indication: PRODUCT USED FOR UNKNOWN INDICATION
     Dosage: FROM DAY -9 TO DAY -6
     Route: 065
  3. PHENYTOIN. [Concomitant]
     Active Substance: PHENYTOIN
     Indication: PRODUCT USED FOR UNKNOWN INDICATION
     Dosage: FROM DAY -9 TO DAY -6
     Route: 065
  4. METRONIDAZOLE. [Concomitant]
     Active Substance: METRONIDAZOLE
     Indication: CLOSTRIDIUM DIFFICILE INFECTION
     Dosage: 200 MG, BEFORE THE THIRD DOSE OF BUSULFAN ON DAY -7
     Route: 042
  5. SULFAMETHOXAZOLE W/TRIMETHOPRIM [Concomitant]
     Active Substance: SULFAMETHOXAZOLE\TRIMETHOPRIM
     Indication: PRODUCT USED FOR UNKNOWN INDICATION
     Dosage: ADDED ON DAY -8
     Route: 065
  6. METRONIDAZOLE. [Concomitant]
     Active Substance: METRONIDAZOLE
     Dosage: 3 DOSES OF 100 MG, Q6H
     Route: 042
  7. FLUDARABINE [Concomitant]
     Active Substance: FLUDARABINE PHOSPHATE
     Indication: BONE MARROW CONDITIONING REGIMEN
     Dosage: ADDED ON DAY -8
     Route: 065
  8. ALLOPURINOL. [Concomitant]
     Active Substance: ALLOPURINOL
     Indication: PRODUCT USED FOR UNKNOWN INDICATION
     Dosage: FROM DAY -9 TO DAY -6
     Route: 065
  9. BUSULFAN. [Concomitant]
     Active Substance: BUSULFAN
     Dosage: 2.1 MG, QD (DAY -6)
     Route: 042
  10. BUSULFAN. [Concomitant]
     Active Substance: BUSULFAN
     Dosage: 52.1 MG, QD (DAY -8)
     Route: 042
  11. NADROPARIN [Concomitant]
     Active Substance: NADROPARIN
     Indication: PRODUCT USED FOR UNKNOWN INDICATION
     Dosage: FROM DAY -9 TO DAY -6
     Route: 065
  12. GRANISETRON [Suspect]
     Active Substance: GRANISETRON
     Indication: PRODUCT USED FOR UNKNOWN INDICATION
     Dosage: FROM DAY -9 TO DAY -6
     Route: 065
  13. BUSULFAN. [Concomitant]
     Active Substance: BUSULFAN
     Indication: BONE MARROW CONDITIONING REGIMEN
     Dosage: 68.4 MG, QD (DAY -9)
     Route: 042

REACTIONS (1)
  - Drug administered to patient of inappropriate age [Recovered/Resolved]
